FAERS Safety Report 6890836-X (Version None)
Quarter: 2010Q3

REPORT INFORMATION
  Report Type: 
  Country: None (occurrence: None)
  Receive Date: 20100731
  Receipt Date: 20090330
  Transmission Date: 20110219
  Serious: No
  Sender: FDA-Public Use
  Company Number: US-PFIZER INC-2009167509

PATIENT
  Sex: Male
  Weight: 72.574 kg

DRUGS (4)
  1. LIPITOR [Suspect]
     Indication: BLOOD CHOLESTEROL INCREASED
     Dosage: 10 MG, 1X/DAY
     Dates: start: 20011001
  2. SULINDAC [Suspect]
     Indication: MUSCULOSKELETAL PAIN
     Dosage: UNK
  3. CLONAZEPAM [Concomitant]
     Indication: SLEEP DISORDER
     Dosage: UNK
  4. ATENOLOL [Concomitant]
     Dosage: UNK

REACTIONS (5)
  - HYPERSENSITIVITY [None]
  - JOINT CREPITATION [None]
  - MUSCULOSKELETAL PAIN [None]
  - MYALGIA [None]
  - ROTATOR CUFF SYNDROME [None]
